FAERS Safety Report 8313393-X (Version None)
Quarter: 2012Q2

REPORT INFORMATION
  Report Type: 
  Country: None (occurrence: None)
  Receive Date: 20120426
  Receipt Date: 20120420
  Transmission Date: 20120825
  Serious: Yes (Hospitalization)
  Sender: FDA-Public Use
  Company Number: PHHO2012BF001467

PATIENT
  Sex: Male
  Weight: 6 kg

DRUGS (2)
  1. CGP 56697 [Suspect]
     Indication: MALARIA
     Dosage: 20 MG, BID
     Route: 048
     Dates: start: 20110926, end: 20110928
  2. CGP 56697 [Suspect]
     Dosage: 20 MG, BID
     Route: 048
     Dates: start: 20111017, end: 20111019

REACTIONS (1)
  - POISONING [None]
